FAERS Safety Report 22839785 (Version 3)
Quarter: 2023Q4

REPORT INFORMATION
  Report Type: Spontaneous
  Country: GB (occurrence: GB)
  Receive Date: 20230818
  Receipt Date: 20231113
  Transmission Date: 20240110
  Serious: Yes (Disabling, Other)
  Sender: FDA-Public Use
  Company Number: GB-ANIPHARMA-2023-UK-000249

PATIENT
  Age: 63 Year
  Sex: Female
  Weight: 70 kg

DRUGS (3)
  1. ANASTROZOLE [Suspect]
     Active Substance: ANASTROZOLE
     Indication: Adverse drug reaction
     Dosage: DOSE TEXT: 1MG
     Route: 048
     Dates: start: 20201224
  2. ALENDRONIC ACID [Concomitant]
     Active Substance: ALENDRONIC ACID
     Route: 065
  3. CALCIUM\CHOLECALCIFEROL [Concomitant]
     Active Substance: CALCIUM\CHOLECALCIFEROL
     Route: 065

REACTIONS (6)
  - Cognitive disorder [Recovered/Resolved with Sequelae]
  - Insomnia [Recovered/Resolved with Sequelae]
  - Fatigue [Recovered/Resolved with Sequelae]
  - Muscle tightness [Recovered/Resolved with Sequelae]
  - Memory impairment [Recovered/Resolved with Sequelae]
  - Insomnia [Unknown]
